FAERS Safety Report 17683021 (Version 3)
Quarter: 2020Q3

REPORT INFORMATION
  Report Type: Other
  Country: JP (occurrence: JP)
  Receive Date: 20200420
  Receipt Date: 20200818
  Transmission Date: 20201102
  Serious: Yes (Death, Hospitalization, Other)
  Sender: FDA-Public Use
  Company Number: JP-ROCHE-2549743

PATIENT
  Age: 74 Year
  Sex: Male
  Weight: 43 kg

DRUGS (13)
  1. ETOPOSIDE. [Concomitant]
     Active Substance: ETOPOSIDE
     Indication: B-CELL LYMPHOMA
     Route: 042
  2. ZEVALIN [Concomitant]
     Active Substance: IBRITUMOMAB TIUXETAN
     Indication: B-CELL LYMPHOMA
     Route: 042
  3. OBINUTUZUMAB. [Suspect]
     Active Substance: OBINUTUZUMAB
     Route: 042
     Dates: start: 20190626, end: 20190626
  4. RITUXIMAB. [Suspect]
     Active Substance: RITUXIMAB
     Indication: B-CELL LYMPHOMA
     Route: 041
  5. BENDAMUSTINE HYDROCHLORIDE. [Suspect]
     Active Substance: BENDAMUSTINE HYDROCHLORIDE
     Indication: B-CELL LYMPHOMA
     Route: 042
     Dates: start: 20190617, end: 20190717
  6. PREDNISOLONE. [Concomitant]
     Active Substance: PREDNISOLONE
     Indication: B-CELL LYMPHOMA
     Route: 048
  7. OBINUTUZUMAB. [Suspect]
     Active Substance: OBINUTUZUMAB
     Route: 042
     Dates: start: 20190708, end: 20190708
  8. OBINUTUZUMAB. [Suspect]
     Active Substance: OBINUTUZUMAB
     Route: 042
     Dates: start: 20190718, end: 20190718
  9. OBINUTUZUMAB. [Suspect]
     Active Substance: OBINUTUZUMAB
     Indication: B-CELL LYMPHOMA
     Route: 042
     Dates: start: 20190617, end: 20190617
  10. RITUXIMAB. [Suspect]
     Active Substance: RITUXIMAB
     Route: 042
  11. CYCLOPHOSPHAMIDE MONOHYDRATE [Concomitant]
     Active Substance: CYCLOPHOSPHAMIDE
     Indication: B-CELL LYMPHOMA
     Route: 042
  12. DOXORUBICIN HYDROCHLORIDE. [Concomitant]
     Active Substance: DOXORUBICIN HYDROCHLORIDE
     Indication: B-CELL LYMPHOMA
     Route: 042
  13. VINCRISTINE SULFATE. [Concomitant]
     Active Substance: VINCRISTINE SULFATE
     Indication: B-CELL LYMPHOMA
     Route: 042

REACTIONS (2)
  - Myelosuppression [Unknown]
  - Cytomegalovirus infection [Recovered/Resolved]

NARRATIVE: CASE EVENT DATE: 20190723
